FAERS Safety Report 9156988 (Version 2)
Quarter: 2013Q1

REPORT INFORMATION
  Report Type: Spontaneous
  Country: DK (occurrence: None)
  Receive Date: 20130212
  Receipt Date: 20130214
  Transmission Date: 20140127
  Serious: Yes (Hospitalization)
  Sender: FDA-Public Use
  Company Number: AUR-APL-2013-01241

PATIENT
  Age: 60 Year
  Sex: Female

DRUGS (2)
  1. LAMOTRIGINE (LAMOTRIGINE) [Suspect]
     Indication: DEPRESSION
     Dates: start: 20121106, end: 20121120
  2. QUETIAPINE (QUETIAPINE) (QUETIAPINE) [Suspect]
     Indication: DEPRESSION
     Route: 048

REACTIONS (1)
  - Thrombosis [None]
